FAERS Safety Report 14378760 (Version 2)
Quarter: 2018Q2

REPORT INFORMATION
  Report Type: Spontaneous
  Country: FR (occurrence: FR)
  Receive Date: 20180112
  Receipt Date: 20180531
  Transmission Date: 20180711
  Serious: Yes (Other)
  Sender: FDA-Public Use
  Company Number: FR-MERCK KGAA-2039991

PATIENT
  Age: 47 Year
  Sex: Female

DRUGS (1)
  1. NOVOTHYROX [Suspect]
     Active Substance: LEVOTHYROXINE SODIUM
     Indication: THYROID DISORDER
     Dates: start: 201703, end: 201711

REACTIONS (14)
  - Myalgia [Recovered/Resolved]
  - Impatience [Recovered/Resolved]
  - Loss of personal independence in daily activities [Recovered/Resolved]
  - Irritability [Recovered/Resolved]
  - Insomnia [Recovered/Resolved]
  - Sleep disorder [Recovered/Resolved]
  - Pain [Recovered/Resolved]
  - Asthenia [Recovered/Resolved]
  - Quality of life decreased [Recovered/Resolved]
  - Fatigue [Recovered/Resolved]
  - Vertigo [Recovered/Resolved]
  - Disturbance in attention [Recovered/Resolved]
  - Limb discomfort [Recovered/Resolved]
  - Decreased activity [None]

NARRATIVE: CASE EVENT DATE: 201703
